FAERS Safety Report 5971562-8 (Version None)
Quarter: 2008Q4

REPORT INFORMATION
  Report Type: 
  Country: None (occurrence: None)
  Receive Date: 20081201
  Receipt Date: 20081117
  Transmission Date: 20090506
  Serious: Yes (Other)
  Sender: FDA-Public Use
  Company Number: US-JNJFOC-20081104706

PATIENT
  Age: 6 Decade
  Sex: Female

DRUGS (1)
  1. DORIBAX [Suspect]
     Indication: VENTRICULO-PERITONEAL SHUNT
     Route: 041

REACTIONS (1)
  - CONVULSION [None]
